FAERS Safety Report 6235531-5 (Version None)
Quarter: 2009Q2

REPORT INFORMATION
  Report Type: 
  Country: None (occurrence: None)
  Receive Date: 20090618
  Receipt Date: 20081009
  Transmission Date: 20091009
  Serious: No
  Sender: FDA-Public Use
  Company Number: US-ASTRAZENECA-2008UW22273

PATIENT
  Sex: Female
  Weight: 62.1 kg

DRUGS (5)
  1. RHINOCORT [Suspect]
     Indication: HYPERSENSITIVITY
     Dosage: 4 SPRAYS DAILY
     Route: 045
     Dates: start: 20080901
  2. VALIUM [Concomitant]
  3. TOPAMAX [Concomitant]
  4. AMERAGE [Concomitant]
     Indication: MIGRAINE
  5. COMPAZINE [Concomitant]

REACTIONS (2)
  - DRY THROAT [None]
  - MIGRAINE [None]
